FAERS Safety Report 6957658-2 (Version None)
Quarter: 2010Q3

REPORT INFORMATION
  Report Type: 
  Country: None (occurrence: None)
  Receive Date: 20100831
  Receipt Date: 20100802
  Transmission Date: 20110219
  Serious: Yes (Other)
  Sender: FDA-Public Use
  Company Number: PHEH2008US05726

PATIENT
  Sex: Male
  Weight: 83.9 kg

DRUGS (25)
  1. AREDIA [Suspect]
     Indication: METASTASES TO BONE
     Dosage: UNK
     Dates: start: 20080201
  2. ZOMETA [Suspect]
     Indication: METASTASES TO BONE
     Dosage: 4 MG, EVERY 4-6 WEEKS
     Route: 042
     Dates: start: 20070101, end: 20080101
  3. ATENOLOL [Concomitant]
     Dosage: 25 MG, QHS
     Route: 048
  4. WARFARIN SODIUM [Concomitant]
     Dosage: 5 MG, QD
     Route: 048
  5. REQUIP [Concomitant]
     Dosage: 1 MG, TID
     Route: 048
  6. PRAVASTATIN [Concomitant]
     Dosage: 40 MG, QD
     Route: 048
  7. DEXAMETHASON ^COPHAR^ [Concomitant]
     Dosage: 2 MG, QD
     Route: 048
  8. DIGOXIN [Concomitant]
     Dosage: 0.25 MG, QD
     Route: 048
  9. CALCIUM [Concomitant]
     Dosage: 500 MG, TID
     Route: 048
  10. MECLIZINE [Concomitant]
     Dosage: 25 MG, BID
     Route: 048
  11. ZETIA [Concomitant]
  12. LANOXIN [Concomitant]
  13. CHEMOTHERAPEUTICS NOS [Concomitant]
  14. TAXOTERE [Concomitant]
  15. HYDROCODONE [Concomitant]
  16. PREDNISONE [Concomitant]
  17. PROPOXYPHENE HCL [Concomitant]
  18. ROPINIROLE HYDROCHLORIDE [Concomitant]
  19. AUGMENTIN '125' [Concomitant]
  20. FUROSEMIDE [Concomitant]
  21. CLOPIDOGREL [Concomitant]
     Dosage: 75 MG, QD
  22. SIMVASTATIN [Concomitant]
  23. HYDROCHLOROTHIAZIDE [Concomitant]
     Dosage: 0.5 DF, QD
  24. BAYCOL [Concomitant]
     Dosage: 0.3 MG, QD
  25. TAMSULOSIN HCL [Concomitant]

REACTIONS (36)
  - ACCELERATED IDIOVENTRICULAR RHYTHM [None]
  - ANAEMIA [None]
  - ANHEDONIA [None]
  - ANXIETY [None]
  - ARTHRALGIA [None]
  - BENIGN PROSTATIC HYPERPLASIA [None]
  - BONE DISORDER [None]
  - BONE MARROW FAILURE [None]
  - CONSTIPATION [None]
  - CYSTOSCOPY [None]
  - DEFORMITY [None]
  - DIZZINESS [None]
  - DYSURIA [None]
  - EMOTIONAL DISTRESS [None]
  - EXOSTOSIS [None]
  - FALL [None]
  - HAEMATURIA [None]
  - HOT FLUSH [None]
  - INJURY [None]
  - INTERNATIONAL NORMALISED RATIO INCREASED [None]
  - INTERVERTEBRAL DISC DEGENERATION [None]
  - JAW LESION EXCISION [None]
  - LIP OEDEMA [None]
  - MASTICATION DISORDER [None]
  - NEPHROLITHIASIS [None]
  - NEUTROPENIA [None]
  - NOCTURIA [None]
  - OEDEMA PERIPHERAL [None]
  - OSTEONECROSIS OF JAW [None]
  - PAIN IN JAW [None]
  - PROTHROMBIN TIME PROLONGED [None]
  - PYURIA [None]
  - STAPHYLOCOCCAL INFECTION [None]
  - SWELLING FACE [None]
  - THROMBOCYTOPENIA [None]
  - TOOTH EXTRACTION [None]
